FAERS Safety Report 5771094-6 (Version None)
Quarter: 2008Q2

REPORT INFORMATION
  Report Type: 
  Country: None (occurrence: None)
  Receive Date: 20080613
  Receipt Date: 20080522
  Transmission Date: 20081010
  Serious: No
  Sender: FDA-Public Use
  Company Number: US-ABBOTT-08P-163-0453350-00

PATIENT
  Sex: Male
  Weight: 127.12 kg

DRUGS (8)
  1. HUMIRA [Suspect]
     Indication: PSORIATIC ARTHROPATHY
     Route: 050
     Dates: start: 20080522, end: 20080522
  2. HUMIRA [Suspect]
     Indication: PSORIASIS
     Route: 050
  3. HUMIRA [Suspect]
     Route: 050
  4. CELECOXIB [Concomitant]
     Indication: ARTHRITIS
     Route: 048
  5. EDFLEX [Concomitant]
     Indication: ARTHRITIS
     Route: 048
  6. ASPIRIN [Concomitant]
     Indication: CARDIAC DISORDER
     Route: 048
  7. ZOLPIDEM TARTRATE [Concomitant]
     Indication: INSOMNIA
     Route: 048
  8. INEGY [Concomitant]
     Indication: BLOOD CHOLESTEROL
     Route: 048

REACTIONS (1)
  - ACCIDENTAL EXPOSURE [None]
